FAERS Safety Report 5917121-4 (Version None)
Quarter: 2008Q4

REPORT INFORMATION
  Report Type: 
  Country: None (occurrence: None)
  Receive Date: 20081014
  Receipt Date: 20081007
  Transmission Date: 20090506
  Serious: Yes (Death, Other)
  Sender: FDA-Public Use
  Company Number: JP-ELI_LILLY_AND_COMPANY-JP200808002339

PATIENT
  Sex: Male
  Weight: 56 kg

DRUGS (3)
  1. ALIMTA [Suspect]
     Indication: PERITONEAL MESOTHELIOMA MALIGNANT
     Dosage: 770 MG, OTHER
     Route: 042
     Dates: start: 20080401, end: 20080513
  2. PANVITAN [Concomitant]
     Dosage: 1 G, DAILY (1/D)
     Route: 048
     Dates: start: 20070903, end: 20080518
  3. CYANOCOBALAMIN [Concomitant]
     Dosage: 1 MG, OTHER
     Route: 030
     Dates: start: 20080502, end: 20080502

REACTIONS (2)
  - ILEUS [None]
  - MALIGNANT NEOPLASM PROGRESSION [None]
